FAERS Safety Report 9959791 (Version 3)
Quarter: 2015Q1

REPORT INFORMATION
  Report Type: Spontaneous
  Country: US (occurrence: None)
  Receive Date: 20140228
  Receipt Date: 20150115
  Transmission Date: 20150721
  Serious: Yes (Hospitalization, Other)
  Sender: FDA-Public Use
  Company Number: 2014-US-002031

PATIENT
  Age: 40 Year
  Sex: Female
  Weight: 68.9 kg

DRUGS (6)
  1. LUNESTA [Suspect]
     Active Substance: ESZOPICLONE
  2. PILOCARPINE [Suspect]
     Active Substance: PILOCARPINE
     Indication: DRY MOUTH
     Dates: start: 20140611
  3. XYREM [Suspect]
     Active Substance: SODIUM OXYBATE
     Indication: CATAPLEXY
     Route: 048
     Dates: start: 200601, end: 2006
  4. CYMBALTA [Concomitant]
     Active Substance: DULOXETINE HYDROCHLORIDE
  5. XYREM [Suspect]
     Active Substance: SODIUM OXYBATE
     Indication: NARCOLEPSY
     Route: 048
     Dates: start: 200601, end: 2006
  6. PILOCARPINE [Suspect]
     Active Substance: PILOCARPINE
     Indication: DRY EYE
     Dates: start: 20140611

REACTIONS (21)
  - Dry eye [None]
  - Wrong technique in drug usage process [None]
  - Depression [None]
  - Pain [None]
  - Mental disorder [None]
  - Palpitations [None]
  - Head injury [None]
  - Injury [None]
  - Cervical vertebral fracture [None]
  - Dry mouth [None]
  - Cataplexy [None]
  - Inappropriate schedule of drug administration [None]
  - Migraine [None]
  - Depersonalisation [None]
  - Fall [None]
  - Gastrooesophageal reflux disease [None]
  - Hyperhidrosis [None]
  - Back injury [None]
  - Blood potassium abnormal [None]
  - Hypoaesthesia [None]
  - Sjogren^s syndrome [None]

NARRATIVE: CASE EVENT DATE: 20140212
